FAERS Safety Report 8492199-5 (Version None)
Quarter: 2012Q3

REPORT INFORMATION
  Report Type: 
  Country: None (occurrence: None)
  Receive Date: 20120706
  Receipt Date: 20120702
  Transmission Date: 20120928
  Serious: Yes (Hospitalization)
  Sender: FDA-Public Use
  Company Number: US-BAYER-2012-066222

PATIENT
  Age: 28 Year
  Sex: Female
  Weight: 89.2 kg

DRUGS (2)
  1. YAZ [Suspect]
  2. IBUPROFEN [Concomitant]
     Indication: PAIN
     Dosage: UNK
     Dates: start: 20090301

REACTIONS (1)
  - PULMONARY EMBOLISM [None]
